FAERS Safety Report 5446329-X (Version None)
Quarter: 2007Q3

REPORT INFORMATION
  Report Type: 
  Country: None (occurrence: None)
  Receive Date: 20070907
  Receipt Date: 20070829
  Transmission Date: 20080115
  Serious: Yes (Hospitalization)
  Sender: FDA-Public Use
  Company Number: JP-ROCHE-510302

PATIENT
  Age: 71 Year
  Sex: Male

DRUGS (5)
  1. TICLOPIDINE HCL [Suspect]
     Indication: PERCUTANEOUS CORONARY INTERVENTION
     Dosage: INDICATION REPORTED AS PERCUTANEOUS CORONARY INTERVENTION WITH CIPHER STENT PLACEMENT.
     Route: 048
     Dates: start: 20061213, end: 20061215
  2. LIPITOR [Concomitant]
     Route: 048
     Dates: start: 20061213
  3. ASPIRIN [Concomitant]
     Route: 048
     Dates: start: 20061213
  4. RABEPRAZOLE SODIUM [Concomitant]
     Route: 048
     Dates: start: 20061213
  5. ZOLPIDEM [Concomitant]
     Route: 048
     Dates: start: 20061213

REACTIONS (1)
  - RHABDOMYOLYSIS [None]
